FAERS Safety Report 22139532 (Version 1)
Quarter: 2023Q1

REPORT INFORMATION
  Report Type: Spontaneous
  Country: US (occurrence: US)
  Receive Date: 20230327
  Receipt Date: 20230327
  Transmission Date: 20230418
  Serious: No
  Sender: FDA-Public Use
  Company Number: ALC2022US002551

PATIENT
  Sex: Male

DRUGS (1)
  1. PATADAY ONCE DAILY RELIEF [Suspect]
     Active Substance: OLOPATADINE HYDROCHLORIDE
     Indication: Hypersensitivity
     Dosage: UNK
     Route: 047
     Dates: start: 20220522

REACTIONS (7)
  - Eyelid irritation [Recovering/Resolving]
  - Eyelids pruritus [Recovering/Resolving]
  - Eyelid disorder [Recovering/Resolving]
  - Erythema of eyelid [Recovering/Resolving]
  - Eye irritation [Recovering/Resolving]
  - Ocular hyperaemia [Recovering/Resolving]
  - Eye pruritus [Recovering/Resolving]

NARRATIVE: CASE EVENT DATE: 20220523
